FAERS Safety Report 13109109 (Version 3)
Quarter: 2017Q1

REPORT INFORMATION
  Report Type: Spontaneous
  Country: US (occurrence: US)
  Receive Date: 20170112
  Receipt Date: 20170201
  Transmission Date: 20170428
  Serious: No
  Sender: FDA-Public Use
  Company Number: ALCN2017US000599

PATIENT
  Age: 50 Year
  Sex: Female
  Weight: 160 kg

DRUGS (3)
  1. MULTIVITAMINS [Concomitant]
     Active Substance: VITAMINS
     Indication: PRODUCT USED FOR UNKNOWN INDICATION
     Dosage: UNK UNK, QD
     Route: 065
  2. SYSTANE GELDROPS [Suspect]
     Active Substance: POLYETHYLENE GLYCOL 400\PROPYLENE GLYCOL
     Indication: DRY EYE
     Dosage: 1 GTT, UNK
     Route: 047
     Dates: start: 20161202, end: 20161215
  3. ARMOUR THYROID [Concomitant]
     Active Substance: THYROID, PORCINE
     Indication: THYROID DISORDER
     Dosage: 60 MG, QD
     Route: 065

REACTIONS (5)
  - Liquid product physical issue [Unknown]
  - Vision blurred [Recovered/Resolved]
  - Eyelid function disorder [Recovered/Resolved]
  - Eye discharge [Recovered/Resolved]
  - Visual impairment [Recovered/Resolved]
